FAERS Safety Report 4959224-7 (Version None)
Quarter: 2006Q1

REPORT INFORMATION
  Report Type: 
  Country: None (occurrence: None)
  Receive Date: 20060127
  Receipt Date: 20050926
  Transmission Date: 20060701
  Serious: Yes (Other)
  Sender: FDA-Public Use
  Company Number: 2005-US-00194

PATIENT
  Age: 35 Year
  Sex: Female
  Weight: 95.2554 kg

DRUGS (3)
  1. CLOZAPINE [Suspect]
     Indication: SCHIZOPHRENIA
     Dosage: 700 MG, QD, ORAL
     Route: 048
     Dates: start: 20030901, end: 20050901
  2. HALOPERIDOL [Concomitant]
  3. BENZTROPINE MESYLATE [Concomitant]

REACTIONS (1)
  - CONVULSION [None]
